FAERS Safety Report 21845455 (Version 1)
Quarter: 2023Q1

REPORT INFORMATION
  Report Type: Spontaneous
  Country: US (occurrence: US)
  Receive Date: 20230111
  Receipt Date: 20230111
  Transmission Date: 20230418
  Serious: No
  Sender: FDA-Public Use
  Company Number: US-JNJFOC-20230105855

PATIENT
  Age: 73 Year
  Sex: Female
  Weight: 87.168 kg

DRUGS (3)
  1. TREMFYA [Suspect]
     Active Substance: GUSELKUMAB
     Indication: Psoriatic arthropathy
     Route: 058
     Dates: start: 20210922
  2. TREMFYA [Suspect]
     Active Substance: GUSELKUMAB
  3. NIACIN [Concomitant]
     Active Substance: NIACIN
     Indication: Blood cholesterol

REACTIONS (3)
  - Arthritis [Unknown]
  - Asthenia [Unknown]
  - Mobility decreased [Unknown]
